FAERS Safety Report 8346923-2 (Version None)
Quarter: 2012Q2

REPORT INFORMATION
  Report Type: 
  Country: None (occurrence: None)
  Receive Date: 20120509
  Receipt Date: 20120503
  Transmission Date: 20120825
  Serious: Yes (Hospitalization)
  Sender: FDA-Public Use
  Company Number: PHHY2012US037890

PATIENT
  Age: 39 Year
  Sex: Male

DRUGS (5)
  1. VALPROIC ACID [Suspect]
     Dosage: 250 MG, UNK
     Route: 048
  2. ARIPIPRAZOLE [Suspect]
     Indication: PSYCHOTIC DISORDER
     Dosage: 2.5 MG, BID
     Route: 048
  3. ARIPIPRAZOLE [Suspect]
     Dosage: 7.5 MG, UNK
  4. DOXYCYCLINE [Suspect]
     Dosage: 100 MG, BID
     Route: 048
  5. TEMAZEPAM [Suspect]
     Dosage: 30 MG AT NIGHT
     Route: 048

REACTIONS (6)
  - NEGATIVISM [None]
  - STEREOTYPY [None]
  - CATATONIA [None]
  - STARING [None]
  - BLOOD CREATINE PHOSPHOKINASE INCREASED [None]
  - MUTISM [None]
